FAERS Safety Report 14838054 (Version 3)
Quarter: 2018Q3

REPORT INFORMATION
  Report Type: Spontaneous
  Country: FR (occurrence: FR)
  Receive Date: 20180502
  Receipt Date: 20180723
  Transmission Date: 20181010
  Serious: Yes (Hospitalization)
  Sender: FDA-Public Use
  Company Number: FR-MYLANLABS-2018M1027360

PATIENT
  Age: 55 Year
  Sex: Female
  Weight: 73 kg

DRUGS (9)
  1. MIRTAZAPINE. [Suspect]
     Active Substance: MIRTAZAPINE
     Indication: AFFECTIVE DISORDER
     Dosage: 15 MG, QD
     Route: 048
     Dates: start: 201709
  2. BRINTELLIX [Suspect]
     Active Substance: VORTIOXETINE HYDROBROMIDE
     Indication: AFFECTIVE DISORDER
     Dosage: 1 DF, QD
     Route: 048
     Dates: start: 201709
  3. ATORVASTATIN [Suspect]
     Active Substance: ATORVASTATIN
     Indication: HYPERCHOLESTEROLAEMIA
     Dosage: 20 MG, QD
     Route: 048
     Dates: end: 20171107
  4. THERALENE [Suspect]
     Active Substance: TRIMEPRAZINE
     Indication: PRODUCT USED FOR UNKNOWN INDICATION
     Dosage: UNK
     Route: 048
  5. BRINTELLIX [Suspect]
     Active Substance: VORTIOXETINE HYDROBROMIDE
     Dosage: 5 MG, QD
     Route: 048
     Dates: start: 201709
  6. TEMESTA                            /00273201/ [Concomitant]
     Active Substance: LORAZEPAM
     Indication: PRODUCT USED FOR UNKNOWN INDICATION
     Dosage: 1 DF, QD
     Route: 048
  7. DEPAMIDE [Suspect]
     Active Substance: VALPROMIDE
     Indication: AFFECTIVE DISORDER
     Dosage: 3 DF, UNK
     Route: 048
     Dates: start: 201709, end: 20171109
  8. ICAZ [Concomitant]
     Active Substance: ISRADIPINE
     Indication: HYPERTENSION
     Dosage: 5 MG, QD
     Route: 048
  9. DEPAMIDE [Suspect]
     Active Substance: VALPROMIDE
     Indication: BRIEF PSYCHOTIC DISORDER WITH MARKED STRESSORS

REACTIONS (3)
  - Hepatocellular injury [Recovering/Resolving]
  - Cholestasis [Recovering/Resolving]
  - Hepatitis acute [Recovered/Resolved]

NARRATIVE: CASE EVENT DATE: 20171107
